FAERS Safety Report 6814900-6 (Version None)
Quarter: 2010Q3

REPORT INFORMATION
  Report Type: 
  Country: None (occurrence: None)
  Receive Date: 20100702
  Receipt Date: 20100624
  Transmission Date: 20110219
  Serious: Yes (Hospitalization)
  Sender: FDA-Public Use
  Company Number: FI-MILLENNIUM PHARMACEUTICALS, INC.-2009-04564

PATIENT

DRUGS (3)
  1. VELCADE [Suspect]
     Indication: MULTIPLE MYELOMA
     Dates: start: 20090526, end: 20090820
  2. DEXAMETHASONE [Suspect]
     Indication: MULTIPLE MYELOMA
     Dosage: UNK
     Dates: start: 20090526, end: 20090820
  3. MELPHALAN HYDROCHLORIDE [Suspect]
     Indication: MULTIPLE MYELOMA
     Dosage: 330 MG, UNK
     Route: 042
     Dates: start: 20091021, end: 20091021

REACTIONS (2)
  - FEBRILE NEUTROPENIA [None]
  - H1N1 INFLUENZA [None]
